FAERS Safety Report 8100166-6 (Version None)
Quarter: 2012Q1

REPORT INFORMATION
  Report Type: 
  Country: None (occurrence: None)
  Receive Date: 20120129
  Receipt Date: 20111129
  Transmission Date: 20120608
  Serious: No
  Sender: FDA-Public Use
  Company Number: US-ABBOTT-11P-163-0879385-00

PATIENT
  Age: 56 Year
  Sex: Female

DRUGS (10)
  1. HUMIRA [Suspect]
     Indication: CROHN'S DISEASE
     Dates: start: 20080101
  2. CRESTOR [Concomitant]
     Indication: BLOOD CHOLESTEROL INCREASED
     Dosage: DAILY
  3. TYLENOL W/ CODEINE NO. 3 [Concomitant]
     Indication: ABDOMINAL PAIN
     Dosage: 1-2 TABS EVERY 4-6 HOURS
  4. CALCIUM PLUS [Concomitant]
     Indication: MINERAL SUPPLEMENTATION
     Dosage: DAILY
  5. UFRO FORTE [Concomitant]
     Indication: LIVER DISORDER
     Dosage: DAILY
  6. AMBIEN [Concomitant]
     Indication: INSOMNIA
  7. TYLENOL E.S. OTC [Concomitant]
     Indication: ABDOMINAL PAIN
  8. PRILOSEC [Concomitant]
     Indication: GASTRIC ULCER
  9. RECLAST [Concomitant]
     Indication: BONE DENSITY DECREASED
  10. VIT C [Concomitant]
     Indication: VITAMIN SUPPLEMENTATION

REACTIONS (1)
  - DIARRHOEA [None]
